FAERS Safety Report 18455389 (Version 1)
Quarter: 2020Q4

REPORT INFORMATION
  Report Type: Spontaneous
  Country: US (occurrence: US)
  Receive Date: 20201102
  Receipt Date: 20201102
  Transmission Date: 20210114
  Serious: Yes (Other)
  Sender: FDA-Public Use
  Company Number: US-GILEAD-2020-0502070

PATIENT
  Age: 35 Year
  Sex: Female

DRUGS (13)
  1. OXYTOCIN. [Concomitant]
     Active Substance: OXYTOCIN
     Route: 042
  2. FENTANYL. [Concomitant]
     Active Substance: FENTANYL
  3. VEKLURY [Suspect]
     Active Substance: REMDESIVIR
     Indication: COVID-19
     Dosage: UNK
     Route: 042
  4. PROPOFOL. [Concomitant]
     Active Substance: PROPOFOL
  5. ALBUTEROL SULFATE. [Concomitant]
     Active Substance: ALBUTEROL SULFATE
  6. OXYGEN. [Concomitant]
     Active Substance: OXYGEN
     Dosage: 4-40 L
     Route: 045
  7. VANCOMYCIN [Concomitant]
     Active Substance: VANCOMYCIN
     Dosage: UNK
  8. METHYLPREDNISOLONE. [Concomitant]
     Active Substance: METHYLPREDNISOLONE
     Route: 042
  9. VECURONIUM [Concomitant]
     Active Substance: VECURONIUM BROMIDE
  10. HEPARIN [Concomitant]
     Active Substance: HEPARIN SODIUM
     Route: 042
  11. CISATRACURIUM. [Concomitant]
     Active Substance: CISATRACURIUM
  12. CONVALESCENT PLASMA [Concomitant]
     Active Substance: HUMAN PLASMA
  13. CEFTRIAXONE. [Concomitant]
     Active Substance: CEFTRIAXONE
     Dosage: UNK

REACTIONS (2)
  - Maternal exposure during pregnancy [Recovered/Resolved]
  - Caesarean section [Recovered/Resolved]
